FAERS Safety Report 9514200 (Version 1)
Quarter: 2013Q3

REPORT INFORMATION
  Report Type: Spontaneous
  Country: US (occurrence: US)
  Receive Date: 20130910
  Receipt Date: 20130910
  Transmission Date: 20140515
  Serious: No
  Sender: FDA-Public Use
  Company Number: -SAAVPROD-BMS18852293

PATIENT
  Age: 80 Year
  Sex: Female

DRUGS (2)
  1. IRBESARTAN [Suspect]
  2. LASIX [Concomitant]

REACTIONS (2)
  - Hypersensitivity [Unknown]
  - Dry mouth [Unknown]
